FAERS Safety Report 5964910-6 (Version None)
Quarter: 2008Q4

REPORT INFORMATION
  Report Type: 
  Country: None (occurrence: None)
  Receive Date: 20081125
  Receipt Date: 20081111
  Transmission Date: 20090506
  Serious: Yes (Other)
  Sender: FDA-Public Use
  Company Number: PHHY2008JP28534

PATIENT

DRUGS (3)
  1. LOCHOL [Suspect]
     Route: 048
  2. PREDNISOLONE [Concomitant]
     Dosage: 20 MG
  3. ADETPHOS [Concomitant]

REACTIONS (1)
  - DEAFNESS [None]
